FAERS Safety Report 7598587-3 (Version None)
Quarter: 2011Q3

REPORT INFORMATION
  Report Type: 
  Country: None (occurrence: None)
  Receive Date: 20110709
  Receipt Date: 20110630
  Transmission Date: 20111222
  Serious: Yes (Hospitalization, Other)
  Sender: FDA-Public Use
  Company Number: TR-ABBOTT-11R-161-0836262-00

PATIENT
  Age: 1 Day
  Sex: Male
  Weight: 0.62 kg

DRUGS (1)
  1. SURVANTA [Suspect]
     Indication: PRODUCT USED FOR UNKNOWN INDICATION
     Dosage: INTRATRACHEAL ADMINISTRATION
     Route: 050

REACTIONS (4)
  - DRUG INEFFECTIVE [None]
  - PATENT DUCTUS ARTERIOSUS REPAIR [None]
  - DISEASE PROGRESSION [None]
  - OXYGEN SUPPLEMENTATION [None]
